FAERS Safety Report 14344647 (Version 2)
Quarter: 2018Q1

REPORT INFORMATION
  Report Type: Report from Study
  Country: LT (occurrence: LT)
  Receive Date: 20180103
  Receipt Date: 20180115
  Transmission Date: 20180509
  Serious: Yes (Other)
  Sender: FDA-Public Use
  Company Number: LT-BEH-2017086297

PATIENT
  Age: 3 Year
  Sex: Male

DRUGS (1)
  1. FACTOR VIII RECOMBINANT (NON-COMPANY) [Suspect]
     Active Substance: ANTIHEMOPHILIC FACTOR, HUMAN RECOMBINANT
     Indication: HAEMORRHAGE PROPHYLAXIS
     Dosage: 20 IU/KG, QW
     Route: 065

REACTIONS (1)
  - Anti factor VIII antibody positive [Unknown]
